FAERS Safety Report 13156242 (Version 1)
Quarter: 2017Q1

REPORT INFORMATION
  Report Type: Spontaneous
  Country: US (occurrence: US)
  Receive Date: 20170126
  Receipt Date: 20170126
  Transmission Date: 20170428
  Serious: Yes (Hospitalization)
  Sender: FDA-Public Use
  Company Number: US-ALKERMES INC.-ALK-2017-000267

PATIENT
  Sex: Male

DRUGS (1)
  1. VIVITROL [Suspect]
     Active Substance: NALTREXONE
     Indication: PRODUCT USED FOR UNKNOWN INDICATION
     Dosage: 380 MG, QMO
     Route: 030

REACTIONS (5)
  - Mental status changes [Recovered/Resolved]
  - Alcohol withdrawal syndrome [Unknown]
  - Confusional state [Recovered/Resolved]
  - Alcoholism [Unknown]
  - Delirium tremens [Recovered/Resolved]

NARRATIVE: CASE EVENT DATE: 20160118
